FAERS Safety Report 8586488-3 (Version None)
Quarter: 2012Q3

REPORT INFORMATION
  Report Type: 
  Country: None (occurrence: None)
  Receive Date: 20120810
  Receipt Date: 20120803
  Transmission Date: 20120928
  Serious: Yes (Other)
  Sender: FDA-Public Use
  Company Number: DE-GENZYME-CAMP-1002264

PATIENT
  Sex: Male
  Weight: 63 kg

DRUGS (1)
  1. MABCAMPATH [Suspect]
     Indication: CHRONIC LEUKAEMIA
     Dosage: 30 MG, 3X/W
     Route: 065
     Dates: start: 20120130, end: 20120521

REACTIONS (9)
  - ABDOMINAL PAIN UPPER [None]
  - NAUSEA [None]
  - PERIPHERAL COLDNESS [None]
  - LYMPHADENOPATHY [None]
  - CHILLS [None]
  - PYREXIA [None]
  - DYSPHAGIA [None]
  - ASTHENIA [None]
  - INFUSION RELATED REACTION [None]
